FAERS Safety Report 12101142 (Version 3)
Quarter: 2016Q2

REPORT INFORMATION
  Report Type: Spontaneous
  Country: DE (occurrence: DE)
  Receive Date: 20160222
  Receipt Date: 20160523
  Transmission Date: 20160815
  Serious: Yes (Hospitalization, Other)
  Sender: FDA-Public Use
  Company Number: DE-BRISTOL-MYERS SQUIBB COMPANY-BMS-2016-010426

PATIENT
  Age: 39 Year
  Sex: Male

DRUGS (26)
  1. RITUXIMAB [Suspect]
     Active Substance: RITUXIMAB
     Indication: NON-HODGKIN^S LYMPHOMA
     Dosage: 375 MG/M2, QCYCLE
     Route: 065
     Dates: start: 20150826, end: 20150911
  2. RITUXIMAB [Suspect]
     Active Substance: RITUXIMAB
     Dosage: 375 MG/M2, QCYCLE
     Route: 065
     Dates: start: 20150928
  3. PREDNISONE. [Suspect]
     Active Substance: PREDNISONE
     Indication: NON-HODGKIN^S LYMPHOMA
     Dosage: 100 MG, QCYCLE
     Route: 065
     Dates: start: 20150826, end: 20150911
  4. ETOPOSIDE. [Suspect]
     Active Substance: ETOPOSIDE
     Dosage: 500 UNK, UNK
     Route: 065
     Dates: start: 20151107, end: 20151108
  5. ETOPOSIDE. [Suspect]
     Active Substance: ETOPOSIDE
     Dosage: 100 MG/M2, QCYCLE
     Route: 065
     Dates: start: 20151126, end: 20151201
  6. CISPLATIN. [Suspect]
     Active Substance: CISPLATIN
     Dosage: 50 UNK, UNK
     Route: 065
     Dates: start: 20151107, end: 20151108
  7. MELPHALAN [Suspect]
     Active Substance: MELPHALAN
     Indication: NON-HODGKIN^S LYMPHOMA
     Dosage: 140 MG/M2, QCYCLE
     Route: 065
     Dates: start: 20151126, end: 20151201
  8. DOXORUBICIN [Suspect]
     Active Substance: DOXORUBICIN
     Dosage: 50 MG/M2, UNK
     Route: 065
     Dates: start: 20150928
  9. CYCLOPHOSPHAMIDE. [Suspect]
     Active Substance: CYCLOPHOSPHAMIDE
     Indication: NON-HODGKIN^S LYMPHOMA
     Dosage: 750 MG/M2, QCYCLE
     Route: 065
     Dates: start: 20150826, end: 20150911
  10. EPIRUBICIN [Suspect]
     Active Substance: EPIRUBICIN
     Indication: NON-HODGKIN^S LYMPHOMA
     Dosage: 50 MG/M2, QCYCLE
     Route: 065
     Dates: start: 20151017, end: 20151018
  11. DOXORUBICIN [Suspect]
     Active Substance: DOXORUBICIN
     Indication: NON-HODGKIN^S LYMPHOMA
     Dosage: 50 MG/M2, QCYCLE
     Route: 065
     Dates: start: 20150826, end: 20150911
  12. ETOPOSIDE. [Suspect]
     Active Substance: ETOPOSIDE
     Indication: NON-HODGKIN^S LYMPHOMA
     Dosage: 500 MG/M2, QCYCLE
     Route: 065
     Dates: start: 20151017, end: 20151018
  13. RITUXIMAB [Suspect]
     Active Substance: RITUXIMAB
     Dosage: UNK MG/M2, UNK
     Route: 065
     Dates: start: 20150918
  14. IFOSFAMIDE. [Suspect]
     Active Substance: IFOSFAMIDE
     Indication: NON-HODGKIN^S LYMPHOMA
     Dosage: 4000 MG/M2, QCYCLE
     Route: 065
     Dates: start: 20151017, end: 20151018
  15. CYTARABIN [Suspect]
     Active Substance: CYTARABINE
     Indication: NON-HODGKIN^S LYMPHOMA
     Dosage: 200 MG/M2, QCYCLE
     Route: 065
     Dates: start: 20151126, end: 20151201
  16. PREDNISONE. [Suspect]
     Active Substance: PREDNISONE
     Dosage: 100 MG, QCYCLE
     Route: 065
     Dates: start: 20150928
  17. CYCLOPHOSPHAMIDE. [Suspect]
     Active Substance: CYCLOPHOSPHAMIDE
     Dosage: 750 MG/M2, QCYCLE
     Route: 065
     Dates: start: 20150928
  18. VINCRISTINE [Suspect]
     Active Substance: VINCRISTINE
     Dosage: 2 MG, QCYCLE
     Route: 065
     Dates: start: 20150928
  19. METHOTREXATE SODIUM. [Suspect]
     Active Substance: METHOTREXATE SODIUM
     Indication: NON-HODGKIN^S LYMPHOMA
     Dosage: 3000 MG/M2, QCYCLE
     Route: 065
     Dates: start: 20150928
  20. VINCRISTINE [Suspect]
     Active Substance: VINCRISTINE
     Indication: NON-HODGKIN^S LYMPHOMA
     Dosage: 2 MG, QCYCLE
     Route: 065
     Dates: start: 20150826, end: 20150911
  21. RITUXIMAB [Suspect]
     Active Substance: RITUXIMAB
     Dosage: 375 MG/M2, QCYCLE
     Route: 065
     Dates: start: 20151017, end: 20151018
  22. IFOSFAMIDE. [Suspect]
     Active Substance: IFOSFAMIDE
     Dosage: 4000 MG/M2, QCYCLE
     Route: 065
     Dates: start: 20151107, end: 20151108
  23. CISPLATIN. [Suspect]
     Active Substance: CISPLATIN
     Indication: NON-HODGKIN^S LYMPHOMA
     Dosage: 50 MG/M2, QCYCLE
     Route: 065
     Dates: start: 20151017, end: 20151018
  24. CARMUSTINE [Suspect]
     Active Substance: CARMUSTINE
     Indication: NON-HODGKIN^S LYMPHOMA
     Dosage: 300 MG/M2, QCYCLE
     Route: 065
     Dates: start: 20151126, end: 20151201
  25. RITUXIMAB [Suspect]
     Active Substance: RITUXIMAB
     Dosage: 375 MG/M2, UNK
     Route: 065
     Dates: start: 20151107, end: 20151108
  26. EPIRUBICIN [Suspect]
     Active Substance: EPIRUBICIN
     Dosage: 50 MG/M2, UNK
     Route: 065
     Dates: start: 20151107, end: 20151108

REACTIONS (8)
  - Atelectasis [Unknown]
  - Malignant neoplasm progression [Not Recovered/Not Resolved]
  - Lymphadenopathy [Not Recovered/Not Resolved]
  - Bronchiolitis [Unknown]
  - Off label use [Unknown]
  - Pulmonary embolism [Unknown]
  - Lung infiltration [Unknown]
  - Pericardial effusion [Unknown]

NARRATIVE: CASE EVENT DATE: 20150917
